FAERS Safety Report 7372958 (Version 6)
Quarter: 2015Q2

REPORT INFORMATION
  Report Type: Report from Study
  Country: US (occurrence: US)
  Receive Date: 20100503
  Receipt Date: 20150630
  Transmission Date: 20150821
  Serious: Yes (Hospitalization)
  Sender: FDA-Public Use
  Company Number: US-BIOGENIDEC-2010BI013791

PATIENT
  Age: 48 Year
  Sex: Female

DRUGS (25)
  1. TYSABRI [Suspect]
     Active Substance: NATALIZUMAB
     Indication: MULTIPLE SCLEROSIS
     Route: 042
     Dates: start: 20120508
  2. SYNTHROID [Concomitant]
     Active Substance: LEVOTHYROXINE SODIUM
  3. TYSABRI [Suspect]
     Active Substance: NATALIZUMAB
     Indication: MULTIPLE SCLEROSIS
     Route: 042
     Dates: start: 20100713, end: 20110916
  4. LYRICA [Concomitant]
     Active Substance: PREGABALIN
  5. NYSTATIN. [Concomitant]
     Active Substance: NYSTATIN
  6. IRON [Concomitant]
     Active Substance: IRON
  7. ASPIRIN. [Concomitant]
     Active Substance: ASPIRIN
  8. OMEPRAZOLE. [Concomitant]
     Active Substance: OMEPRAZOLE
  9. VITAMIN D [Concomitant]
     Active Substance: CHOLECALCIFEROL
  10. WELLBUTRIN [Concomitant]
     Active Substance: BUPROPION HYDROCHLORIDE
  11. CALCITROL [Concomitant]
     Active Substance: CALCITRIOL
  12. FLAXSEED [Concomitant]
     Active Substance: FLAX SEED
  13. CALCIUM WITH D [Concomitant]
     Active Substance: CALCIUM\VITAMIN D
  14. BACLOFEN. [Concomitant]
     Active Substance: BACLOFEN
     Indication: MUSCLE SPASTICITY
  15. HYDROMORPHONE [Concomitant]
     Active Substance: HYDROMORPHONE
  16. VITAMIN E [Concomitant]
     Active Substance: .ALPHA.-TOCOPHEROL
  17. PRIMROSE OIL [Concomitant]
  18. TYSABRI [Suspect]
     Active Substance: NATALIZUMAB
     Indication: MULTIPLE SCLEROSIS
     Route: 042
     Dates: start: 20050218, end: 20050218
  19. TYSABRI [Suspect]
     Active Substance: NATALIZUMAB
     Indication: MULTIPLE SCLEROSIS
     Route: 042
     Dates: start: 20080702, end: 20100323
  20. KADIAN [Concomitant]
     Active Substance: MORPHINE SULFATE
  21. VITAMIN C [Concomitant]
     Active Substance: ASCORBIC ACID
  22. PREDNISIONE [Concomitant]
  23. VESICARE [Concomitant]
     Active Substance: SOLIFENACIN SUCCINATE
  24. REQUIP XL [Concomitant]
     Active Substance: ROPINIROLE HYDROCHLORIDE
  25. BENAZEPRIL [Concomitant]
     Active Substance: BENAZEPRIL\BENAZEPRIL HYDROCHLORIDE

REACTIONS (6)
  - Anaemia [Recovered/Resolved]
  - Blood test abnormal [Recovered/Resolved]
  - Papillary thyroid cancer [Unknown]
  - Blood calcium decreased [Recovered/Resolved]
  - Dysstasia [Not Recovered/Not Resolved]
  - Gait disturbance [Not Recovered/Not Resolved]

NARRATIVE: CASE EVENT DATE: 20091031
